FAERS Safety Report 23431885 (Version 2)
Quarter: 2024Q1

REPORT INFORMATION
  Report Type: Spontaneous
  Country: GB (occurrence: None)
  Receive Date: 20240123
  Receipt Date: 20240202
  Transmission Date: 20240409
  Serious: Yes (Death, Life-Threatening, Hospitalization, Disabling, Other)
  Sender: FDA-Public Use
  Company Number: 2024A014387

PATIENT
  Age: 77 Year
  Sex: Male
  Weight: 84 kg

DRUGS (12)
  1. DAPAGLIFLOZIN [Suspect]
     Active Substance: DAPAGLIFLOZIN
     Indication: Type 2 diabetes mellitus
     Dosage: 10MG MANE; ;
  2. AMLODIPINE [Concomitant]
     Active Substance: AMLODIPINE BESYLATE
  3. ATENOLOL [Concomitant]
     Active Substance: ATENOLOL
  4. BENDROFLUMETHIAZIDE [Concomitant]
     Active Substance: BENDROFLUMETHIAZIDE
  5. DOXAZOSIN [Concomitant]
     Active Substance: DOXAZOSIN MESYLATE
  6. GLICLAZIDE [Concomitant]
     Active Substance: GLICLAZIDE
  7. LISINOPRIL [Concomitant]
     Active Substance: LISINOPRIL
  8. METFORMIN [Concomitant]
     Active Substance: METFORMIN HYDROCHLORIDE
  9. NAPROXEN [Concomitant]
     Active Substance: NAPROXEN
  10. OMEPRAZOLE [Concomitant]
     Active Substance: OMEPRAZOLE
  11. ACETAMINOPHEN [Concomitant]
     Active Substance: ACETAMINOPHEN
  12. SIMVASTATIN [Concomitant]
     Active Substance: SIMVASTATIN

REACTIONS (3)
  - Necrotising fasciitis [Fatal]
  - Acute kidney injury [Unknown]
  - Diabetic foot [Unknown]

NARRATIVE: CASE EVENT DATE: 20240113
